FAERS Safety Report 4938835-9 (Version None)
Quarter: 2006Q1

REPORT INFORMATION
  Report Type: 
  Country: None (occurrence: None)
  Receive Date: 20060309
  Receipt Date: 20060228
  Transmission Date: 20060701
  Serious: Yes (Hospitalization)
  Sender: FDA-Public Use
  Company Number: GB-MERCK-0603GBR00015B1

PATIENT
  Sex: Male
  Weight: 2 kg

DRUGS (2)
  1. WARFARIN [Concomitant]
  2. ALDOMET [Suspect]
     Indication: HYPERTENSION

REACTIONS (5)
  - DRUG EXPOSURE DURING PREGNANCY [None]
  - ORTHOSTATIC HYPOTENSION [None]
  - SUPERIOR SAGITTAL SINUS THROMBOSIS [None]
  - TRANSIENT TACHYPNOEA OF THE NEWBORN [None]
  - VISUAL FIELD DEFECT [None]
